FAERS Safety Report 10573464 (Version 1)
Quarter: 2014Q4

REPORT INFORMATION
  Report Type: Spontaneous
  Country: CN (occurrence: None)
  Receive Date: 20141030
  Receipt Date: 20141030
  Transmission Date: 20150529
  Serious: Yes (Disabling, Other)
  Sender: FDA-Public Use
  Company Number: PHHY2013CN025550

PATIENT
  Age: 46 Year
  Sex: Male
  Weight: 70 kg

DRUGS (1)
  1. SEBIVO [Suspect]
     Active Substance: TELBIVUDINE
     Indication: CHRONIC HEPATITIS B
     Route: 048
     Dates: start: 20120430, end: 20130221

REACTIONS (16)
  - Decreased appetite [None]
  - Alpha hydroxybutyrate dehydrogenase increased [None]
  - Myalgia [None]
  - Blood lactate dehydrogenase increased [None]
  - Alanine aminotransferase increased [None]
  - Appetite disorder [None]
  - Malaise [None]
  - Blood creatine phosphokinase MB increased [None]
  - Pain [None]
  - Vomiting [None]
  - Nausea [None]
  - Aspartate aminotransferase increased [None]
  - Back pain [None]
  - Blood creatine phosphokinase increased [None]
  - Discomfort [None]
  - Gait disturbance [None]

NARRATIVE: CASE EVENT DATE: 20130105
